FAERS Safety Report 25014674 (Version 3)
Quarter: 2025Q3

REPORT INFORMATION
  Report Type: Spontaneous
  Country: US (occurrence: US)
  Receive Date: 20250226
  Receipt Date: 20250731
  Transmission Date: 20251020
  Serious: No
  Sender: PFIZER
  Company Number: US-PFIZER INC-PV202400110499

PATIENT
  Age: 66 Year
  Sex: Female

DRUGS (2)
  1. TUKYSA [Suspect]
     Active Substance: TUCATINIB
     Dosage: 150 MG 2 TABLETS TWICE A DAY
  2. MOUNJARO [Concomitant]
     Active Substance: TIRZEPATIDE
     Dates: start: 202506

REACTIONS (4)
  - Erythema [Unknown]
  - Gout [Unknown]
  - Product dose omission issue [Unknown]
  - Hypertension [Unknown]
